FAERS Safety Report 7179397-8 (Version None)
Quarter: 2010Q4

REPORT INFORMATION
  Report Type: 
  Country: None (occurrence: None)
  Receive Date: 20101221
  Receipt Date: 20101214
  Transmission Date: 20110411
  Serious: Yes (Other)
  Sender: FDA-Public Use
  Company Number: GB-PFIZER INC-2010122199

PATIENT
  Age: 70 Year
  Sex: Male
  Weight: 92 kg

DRUGS (5)
  1. VIAGRA [Suspect]
     Indication: ERECTILE DYSFUNCTION
     Dosage: 50 MG, UNK
     Route: 048
  2. STALEVO [Interacting]
     Indication: PARKINSON'S DISEASE
     Dosage: 150/37.5/200 FIVE TIMES DAILY
  3. ROPINIROLE [Interacting]
     Indication: PARKINSON'S DISEASE
     Dosage: 2 MG FIVE TIMES DAILY
  4. SINEMET [Concomitant]
     Indication: PARKINSON'S DISEASE
     Dosage: 12.5/50 TWICE DAILY
  5. PROPRANOLOL [Concomitant]
     Indication: PARKINSON'S DISEASE
     Dosage: 10 MG, 2X/DAY

REACTIONS (2)
  - DRUG INTERACTION [None]
  - PARKINSON'S DISEASE [None]
